FAERS Safety Report 10208836 (Version 1)
Quarter: 2014Q2

REPORT INFORMATION
  Report Type: Spontaneous
  Country: GB (occurrence: GB)
  Receive Date: 20140530
  Receipt Date: 20140530
  Transmission Date: 20141212
  Serious: Yes (Other)
  Sender: FDA-Public Use
  Company Number: GB-B.I. PHARMACEUTICALS,INC./RIDGEFIELD-2014-BI-23146UK

PATIENT
  Age: 63 Year
  Sex: Female

DRUGS (8)
  1. TRAJENTA [Suspect]
     Indication: TYPE 2 DIABETES MELLITUS
     Route: 065
  2. AMLODIPINE [Concomitant]
     Indication: HYPERTENSION
     Route: 065
  3. METFORMIN [Concomitant]
     Route: 065
  4. PROCYCLIDINE [Concomitant]
     Route: 065
  5. RAMIPRIL [Concomitant]
     Indication: HYPERTENSION
     Route: 065
  6. SIMVASTATIN [Concomitant]
     Indication: HYPERCHOLESTEROLAEMIA
     Route: 065
  7. STEROIDS [Concomitant]
     Indication: SKIN EXFOLIATION
     Route: 065
  8. TRIFLUOPERAZINE [Concomitant]
     Indication: PSYCHOTIC DISORDER
     Route: 065

REACTIONS (1)
  - Burning sensation [Not Recovered/Not Resolved]
